FAERS Safety Report 4896826-0 (Version None)
Quarter: 2006Q1

REPORT INFORMATION
  Report Type: 
  Country: None (occurrence: None)
  Receive Date: 20060126
  Receipt Date: 20060118
  Transmission Date: 20060701
  Serious: Yes (Hospitalization, Other)
  Sender: FDA-Public Use
  Company Number: 200510582BFR

PATIENT
  Age: 21 Year
  Sex: Female

DRUGS (1)
  1. ADALAT [Suspect]
     Dosage: 60 MG, TOTAL DAILY, ORAL
     Route: 048
     Dates: start: 20050808, end: 20050810

REACTIONS (8)
  - DRUG EXPOSURE DURING PREGNANCY [None]
  - FATIGUE [None]
  - HOT FLUSH [None]
  - HYPOTENSION [None]
  - IATROGENIC INJURY [None]
  - REFUSAL OF TREATMENT BY PATIENT [None]
  - RETAINED PLACENTA OR MEMBRANES [None]
  - SENSATION OF HEAVINESS [None]
